FAERS Safety Report 10268547 (Version 1)
Quarter: 2014Q2

REPORT INFORMATION
  Report Type: Spontaneous
  Country: US (occurrence: None)
  Receive Date: 20140627
  Receipt Date: 20140627
  Transmission Date: 20141212
  Serious: Yes (Other)
  Sender: FDA-Public Use
  Company Number: None

PATIENT
  Age: 35 Year
  Sex: Female
  Weight: 65.32 kg

DRUGS (1)
  1. PROACTIV [Suspect]
     Indication: SKIN DISORDER

REACTIONS (3)
  - Rash erythematous [None]
  - Cyst [None]
  - Eye swelling [None]
